FAERS Safety Report 9671910 (Version 2)
Quarter: 2013Q4

REPORT INFORMATION
  Report Type: Spontaneous
  Country: DE (occurrence: DE)
  Receive Date: 20131106
  Receipt Date: 20131126
  Transmission Date: 20140711
  Serious: Yes (Hospitalization)
  Sender: FDA-Public Use
  Company Number: DE-BRISTOL-MYERS SQUIBB COMPANY-19702331

PATIENT
  Age: 53 Year
  Sex: Female
  Weight: 124 kg

DRUGS (4)
  1. ORENCIA [Suspect]
     Indication: RHEUMATOID ARTHRITIS
     Route: 042
     Dates: start: 20121219
  2. ISONIAZIDE [Concomitant]
     Indication: LATENT TUBERCULOSIS
     Route: 048
     Dates: start: 201211, end: 201308
  3. CELEBREX [Concomitant]
     Indication: RHEUMATOID ARTHRITIS
     Route: 048
     Dates: start: 201303, end: 20131118
  4. NOVAMINSULFON [Concomitant]
     Indication: RHEUMATOID ARTHRITIS
     Route: 048
     Dates: start: 201104, end: 20131118

REACTIONS (1)
  - Calculus ureteric [Recovered/Resolved]
